FAERS Safety Report 15541583 (Version 1)
Quarter: 2018Q4

REPORT INFORMATION
  Report Type: Spontaneous
  Country: US (occurrence: US)
  Receive Date: 20181023
  Receipt Date: 20181023
  Transmission Date: 20190205
  Serious: Yes (Other)
  Sender: FDA-Public Use
  Company Number: US-GLAXOSMITHKLINE-US2018188500

PATIENT
  Age: 58 Year
  Sex: Female

DRUGS (1)
  1. VALACYCLOVIR [Suspect]
     Active Substance: VALACYCLOVIR HYDROCHLORIDE
     Indication: HERPES ZOSTER
     Dosage: 500 MG, TID
     Dates: start: 20181010

REACTIONS (7)
  - Neuropathy peripheral [Unknown]
  - Chest discomfort [Unknown]
  - Underdose [Unknown]
  - Oropharyngeal pain [Unknown]
  - Off label use [Unknown]
  - Feeling abnormal [Unknown]
  - Throat tightness [Unknown]

NARRATIVE: CASE EVENT DATE: 20181010
